FAERS Safety Report 6710053-3 (Version None)
Quarter: 2010Q2

REPORT INFORMATION
  Report Type: 
  Country: None (occurrence: None)
  Receive Date: 20100504
  Receipt Date: 20100426
  Transmission Date: 20101027
  Serious: Yes (Hospitalization)
  Sender: FDA-Public Use
  Company Number: JP-MERCK-1004USA04405

PATIENT
  Age: 72 Year
  Sex: Female

DRUGS (6)
  1. JANUVIA [Suspect]
     Indication: TYPE 2 DIABETES MELLITUS
     Route: 048
     Dates: start: 20100329, end: 20100403
  2. METFORMIN HCL [Concomitant]
     Route: 065
     Dates: start: 20100324
  3. DOMENAN [Concomitant]
     Route: 065
     Dates: start: 20100329
  4. IPD [Concomitant]
     Route: 065
     Dates: start: 20100329
  5. SYMBICORT [Concomitant]
     Route: 065
     Dates: start: 20100329
  6. ALVESCO [Concomitant]
     Route: 065
     Dates: start: 20100329

REACTIONS (1)
  - ASTHMA [None]
